FAERS Safety Report 15977614 (Version 2)
Quarter: 2019Q1

REPORT INFORMATION
  Report Type: Spontaneous
  Country: IL (occurrence: IL)
  Receive Date: 20190218
  Receipt Date: 20190225
  Transmission Date: 20190418
  Serious: Yes (Hospitalization)
  Sender: FDA-Public Use
  Company Number: IL-B.I. PHARMACEUTICALS,INC./RIDGEFIELD-2019-BI-006157

PATIENT
  Age: 64 Year
  Sex: Female

DRUGS (2)
  1. METFORMIN [Concomitant]
     Active Substance: METFORMIN HYDROCHLORIDE
     Indication: TYPE 2 DIABETES MELLITUS
     Route: 065
  2. JARDIANCE DUO [Suspect]
     Active Substance: EMPAGLIFLOZIN\METFORMIN HYDROCHLORIDE
     Indication: TYPE 2 DIABETES MELLITUS
     Dosage: FORM STRENGTH/ UNIT DOSE/ DAILY DOSE: 850/12.5 MILLIGRAM
     Route: 065

REACTIONS (5)
  - Hepatic enzyme increased [Unknown]
  - Urinary tract infection [Unknown]
  - Dysuria [Unknown]
  - Escherichia infection [Unknown]
  - Cholangitis [Unknown]

NARRATIVE: CASE EVENT DATE: 201810
